FAERS Safety Report 4890507-5 (Version None)
Quarter: 2006Q1

REPORT INFORMATION
  Report Type: 
  Country: None (occurrence: None)
  Receive Date: 20060123
  Receipt Date: 20060123
  Transmission Date: 20060701
  Serious: Yes (Hospitalization, Other)
  Sender: FDA-Public Use
  Company Number: None

PATIENT
  Sex: Female
  Weight: 69 kg

DRUGS (13)
  1. CYCLOPHOSPHAMIDE [Suspect]
     Indication: BURKITT'S LYMPHOMA
     Dosage: SEE IMAGE
     Dates: start: 20051128, end: 20051202
  2. CYCLOPHOSPHAMIDE [Suspect]
     Indication: LEUKAEMIA
     Dosage: SEE IMAGE
     Dates: start: 20051128, end: 20051202
  3. CYCLOPHOSPHAMIDE [Suspect]
     Indication: BURKITT'S LYMPHOMA
     Dosage: SEE IMAGE
     Dates: start: 20051129
  4. CYCLOPHOSPHAMIDE [Suspect]
     Indication: LEUKAEMIA
     Dosage: SEE IMAGE
     Dates: start: 20051129
  5. CYTARABINE [Suspect]
     Dosage: SEE IMAGE
     Dates: start: 20051129, end: 20051129
  6. DEXAMETHASONE TAB [Suspect]
     Dosage: SEE IMAGE
     Dates: start: 20051128, end: 20051202
  7. DEXAMETHASONE TAB [Suspect]
     Dosage: SEE IMAGE
     Dates: start: 20051129
  8. DOXORUBICIN HCL [Suspect]
     Dosage: SEE IMAGE
     Dates: start: 20051128, end: 20051128
  9. DOXORUBICIN HCL [Suspect]
     Dosage: SEE IMAGE
     Dates: start: 20051129
  10. G-CSF (FILGRASTIM, AMGEN) [Suspect]
     Dosage: SEE IMAGE
     Dates: start: 20051206, end: 20051212
  11. G-CSF (FILGRASTIM, AMGEN) [Suspect]
     Dosage: SEE IMAGE
     Dates: start: 20051129
  12. LEUCOVORIN CALCIUM [Suspect]
     Dosage: SEE IMAGE
     Dates: start: 20051130, end: 20051206
  13. LEUCOVORIN CALCIUM [Suspect]
     Dosage: SEE IMAGE
     Dates: start: 20051129

REACTIONS (2)
  - FEBRILE NEUTROPENIA [None]
  - STOMATITIS [None]
